FAERS Safety Report 11661000 (Version 1)
Quarter: 2015Q4

REPORT INFORMATION
  Report Type: Spontaneous
  Country: US (occurrence: US)
  Receive Date: 20151026
  Receipt Date: 20151026
  Transmission Date: 20160304
  Serious: Yes (Other)
  Sender: FDA-Public Use
  Company Number: US-ELI_LILLY_AND_COMPANY-US201510005661

PATIENT
  Sex: Female

DRUGS (4)
  1. HUMULIN N [Suspect]
     Active Substance: INSULIN HUMAN
     Indication: TYPE 2 DIABETES MELLITUS
     Dosage: 16 U, EACH MORNING
     Route: 065
     Dates: start: 201506
  2. METFORMIN [Suspect]
     Active Substance: METFORMIN HYDROCHLORIDE
     Indication: PRODUCT USED FOR UNKNOWN INDICATION
     Dosage: UNK
     Route: 065
     Dates: end: 20150922
  3. HUMALOG [Suspect]
     Active Substance: INSULIN LISPRO
     Indication: TYPE 2 DIABETES MELLITUS
     Dosage: UNK UNK, PRN
     Route: 065
     Dates: start: 201504
  4. HUMULIN N [Suspect]
     Active Substance: INSULIN HUMAN
     Dosage: 20 U, EACH EVENING
     Route: 065
     Dates: start: 201506

REACTIONS (3)
  - Renal injury [Unknown]
  - Blood glucose increased [Unknown]
  - Incorrect product storage [Unknown]

NARRATIVE: CASE EVENT DATE: 201509
